FAERS Safety Report 9845518 (Version 1)
Quarter: 2014Q1

REPORT INFORMATION
  Report Type: Spontaneous
  Country: US (occurrence: None)
  Receive Date: 20140122
  Receipt Date: 20140122
  Transmission Date: 20141002
  Serious: Yes (Death)
  Sender: FDA-Public Use
  Company Number: POI05473201400015

PATIENT
  Age: 53 Year
  Sex: Female

DRUGS (11)
  1. OXYBUTYNIN CHLORIDE EXTENDED RELEASE [Suspect]
     Dosage: PER ORAL
     Route: 048
     Dates: end: 2012
  2. DIAZEPAM [Suspect]
     Dosage: PER ORAL
     Route: 048
     Dates: end: 2012
  3. BUPROPION [Suspect]
     Dosage: PER ORAL
     Route: 048
     Dates: end: 2012
  4. GABAPENTIN [Suspect]
     Dosage: PER ORAL
     Route: 048
     Dates: end: 2012
  5. DULOXETINE [Suspect]
     Dosage: PER ORAL
     Route: 048
     Dates: end: 2012
  6. LISINOPRIL [Suspect]
     Dosage: PER ORAL
     Route: 048
     Dates: end: 2012
  7. METFORMIN [Suspect]
     Dosage: PER ORAL
     Route: 048
     Dates: end: 2012
  8. MIRTAZAPINE [Suspect]
     Dosage: PER ORAL
     Route: 048
     Dates: end: 2012
  9. LOVASTATIN [Suspect]
     Dosage: PER ORAL
     Route: 048
     Dates: end: 2012
  10. VALPROIC ACID [Suspect]
     Dosage: PER ORAL
     Route: 048
     Dates: end: 2012
  11. ACETAMINOPHEN (PARACETAMOL) [Suspect]

REACTIONS (2)
  - Completed suicide [None]
  - Exposure via ingestion [None]
